FAERS Safety Report 7325193 (Version 7)
Quarter: 2013Q1

REPORT INFORMATION
  Report Type: Spontaneous
  Country: US (occurrence: US)
  Receive Date: 20100319
  Receipt Date: 20130315
  Transmission Date: 20140127
  Serious: Yes (Hospitalization, Other)
  Sender: FDA-Public Use
  Company Number: US-BAYER-201016842NA

PATIENT
  Age: 18 Year
  Sex: Female
  Weight: 45 kg

DRUGS (13)
  1. YAZ [Suspect]
     Indication: ACNE
     Route: 048
     Dates: start: 20071120, end: 200809
  2. YAZ [Suspect]
     Indication: PREMENSTRUAL SYNDROME
  3. ANTIMIGRAINE PREPARATIONS [Concomitant]
     Indication: MIGRAINE
  4. FUROSEMIDE [Concomitant]
     Indication: HYPERTENSION
     Dates: end: 200808
  5. VERSED [Concomitant]
     Dosage: DAILY DOSE 1 MG
     Route: 042
     Dates: start: 20080913, end: 200809
  6. XANAX [Concomitant]
     Indication: ANXIETY
     Dates: start: 20080913, end: 200809
  7. FENTANYL [Concomitant]
     Indication: PAIN
     Route: 041
     Dates: start: 20080913, end: 20080914
  8. ZOFRAN [Concomitant]
     Dosage: DAILY DOSE 4 MG
     Dates: start: 20080913, end: 20080916
  9. DILAUDID [Concomitant]
     Indication: PAIN
     Dosage: DAILY DOSE 1.5 MG
     Dates: start: 20080914, end: 200809
  10. BENADRYL [Concomitant]
     Dosage: DAILY DOSE 50 MG
     Route: 048
     Dates: start: 20080914, end: 200809
  11. TYLENOL #3 [Concomitant]
     Indication: PAIN
     Route: 048
     Dates: start: 20080915, end: 200809
  12. MOTRIN [Concomitant]
     Indication: PAIN
     Dosage: DAILY DOSE 200 MG
     Route: 048
     Dates: start: 20080916, end: 200809
  13. ANTIMIGRAINE PREPARATIONS [Concomitant]
     Indication: MIGRAINE

REACTIONS (19)
  - Cerebral thrombosis [None]
  - Cerebral infarction [None]
  - Convulsion [None]
  - Vomiting [None]
  - Confusional state [None]
  - Dyskinesia [None]
  - Binocular eye movement disorder [None]
  - Hypoacusis [None]
  - Visual impairment [None]
  - Tremor [None]
  - Depression [None]
  - Intracranial aneurysm [None]
  - Cerebrovascular accident [None]
  - Transient ischaemic attack [None]
  - Hypoaesthesia [None]
  - Muscular weakness [None]
  - Paraesthesia [None]
  - Headache [None]
  - Off label use [None]
